FAERS Safety Report 16533808 (Version 1)
Quarter: 2019Q3

REPORT INFORMATION
  Report Type: Spontaneous
  Country: US (occurrence: US)
  Receive Date: 20190705
  Receipt Date: 20190705
  Transmission Date: 20191004
  Serious: No
  Sender: FDA-Public Use
  Company Number: US-TEVA-2019-US-1069459

PATIENT
  Age: 77 Year
  Sex: Female

DRUGS (6)
  1. SYMBICORT [Concomitant]
     Active Substance: BUDESONIDE\FORMOTEROL FUMARATE DIHYDRATE
  2. THEOPHYLLINE [Concomitant]
     Active Substance: THEOPHYLLINE ANHYDROUS
  3. TUDORZA [Concomitant]
     Active Substance: ACLIDINIUM BROMIDE
  4. FLECAINIDE [Concomitant]
     Active Substance: FLECAINIDE
     Dosage: 100 MILLIGRAM DAILY;
  5. FLECAINIDE [Concomitant]
     Active Substance: FLECAINIDE
     Dosage: 200 MILLIGRAM DAILY;
  6. PROAIR HFA [Suspect]
     Active Substance: ALBUTEROL SULFATE
     Indication: EMPHYSEMA
     Dosage: 2 PUFFS EVERY 3 HOURS AS NEEDED

REACTIONS (5)
  - Intentional product misuse [Unknown]
  - Tremor [Unknown]
  - Malaise [Unknown]
  - Palpitations [Unknown]
  - Dyspnoea [Unknown]
